FAERS Safety Report 13792382 (Version 3)
Quarter: 2017Q3

REPORT INFORMATION
  Report Type: Report from Study
  Country: US (occurrence: US)
  Receive Date: 20170726
  Receipt Date: 20170807
  Transmission Date: 20171127
  Serious: Yes (Disabling, Other)
  Sender: FDA-Public Use
  Company Number: US-GILEAD-2017-0285048

PATIENT
  Age: 64 Year
  Weight: 115.19 kg

DRUGS (23)
  1. POLYETHYLENE GLYCOL [Concomitant]
     Active Substance: POLYETHYLENE GLYCOLS
  2. FOLIC ACID. [Concomitant]
     Active Substance: FOLIC ACID
  3. CRESTOR [Concomitant]
     Active Substance: ROSUVASTATIN CALCIUM
  4. CHLORPHENIRAMINE MALEATE. [Concomitant]
     Active Substance: CHLORPHENIRAMINE MALEATE
  5. LEVOTHYROXINE SODIUM. [Concomitant]
     Active Substance: LEVOTHYROXINE SODIUM
  6. AMLODIPINE [Concomitant]
     Active Substance: AMLODIPINE BESYLATE
  7. AMBRISENTAN [Suspect]
     Active Substance: AMBRISENTAN
     Indication: PRODUCT USED FOR UNKNOWN INDICATION
     Dosage: 5 MG, QD
     Route: 048
     Dates: start: 20170628
  8. SPIRIVA [Concomitant]
     Active Substance: TIOTROPIUM BROMIDE MONOHYDRATE
  9. TOUJEO [Concomitant]
     Active Substance: INSULIN GLARGINE
  10. NOVOLIN N [Concomitant]
     Active Substance: INSULIN HUMAN
  11. VITAMIN D3 [Concomitant]
     Active Substance: CHOLECALCIFEROL
  12. NEXIUM [Concomitant]
     Active Substance: ESOMEPRAZOLE MAGNESIUM
  13. ALPRAZOLAM. [Concomitant]
     Active Substance: ALPRAZOLAM
  14. LORATADINE. [Concomitant]
     Active Substance: LORATADINE
  15. DIGITEK [Concomitant]
     Active Substance: DIGOXIN
  16. METOPROLOL TARTRATE. [Concomitant]
     Active Substance: METOPROLOL TARTRATE
  17. VOLTAREN [Concomitant]
     Active Substance: DICLOFENAC SODIUM
  18. METFORMIN [Concomitant]
     Active Substance: METFORMIN HYDROCHLORIDE
  19. ASPIRIN                            /00002701/ [Concomitant]
     Active Substance: ASPIRIN
  20. REVATIO [Concomitant]
     Active Substance: SILDENAFIL CITRATE
  21. SINGULAIR [Concomitant]
     Active Substance: MONTELUKAST SODIUM
  22. FENOFIBRATE. [Concomitant]
     Active Substance: FENOFIBRATE
  23. VASCEPA [Concomitant]
     Active Substance: ICOSAPENT ETHYL

REACTIONS (4)
  - Apparent death [Unknown]
  - Joint swelling [Unknown]
  - Peripheral swelling [Unknown]
  - Haematochezia [Unknown]

NARRATIVE: CASE EVENT DATE: 20170718
